FAERS Safety Report 8353541-9 (Version None)
Quarter: 2012Q2

REPORT INFORMATION
  Report Type: 
  Country: None (occurrence: None)
  Receive Date: 20120511
  Receipt Date: 20110520
  Transmission Date: 20120825
  Serious: No
  Sender: FDA-Public Use
  Company Number: US-GLAXOSMITHKLINE-A0929370A

PATIENT
  Sex: Female

DRUGS (1)
  1. TYKERB [Suspect]
     Dosage: 250MG UNKNOWN
     Route: 065

REACTIONS (3)
  - NAUSEA [None]
  - VOMITING [None]
  - HIP SURGERY [None]
